FAERS Safety Report 13450470 (Version 1)
Quarter: 2017Q2

REPORT INFORMATION
  Report Type: Spontaneous
  Country: JP (occurrence: JP)
  Receive Date: 20170418
  Receipt Date: 20170418
  Transmission Date: 20170830
  Serious: Yes (Hospitalization)
  Sender: FDA-Public Use
  Company Number: JP-ROCHE-1921576

PATIENT
  Age: 72 Year
  Sex: Female

DRUGS (8)
  1. BAYASPIRIN [Concomitant]
     Active Substance: ASPIRIN
     Dosage: DOSAGE IS UNCERTAIN.
     Route: 065
  2. MICAMLO [Concomitant]
     Active Substance: AMLODIPINE BESYLATE\TELMISARTAN
     Dosage: DOSAGE IS UNCERTAIN.
     Route: 065
  3. ATORVASTATIN [Concomitant]
     Active Substance: ATORVASTATIN
     Dosage: DOSAGE IS UNCERTAIN.
     Route: 065
  4. FEBURIC [Concomitant]
     Active Substance: FEBUXOSTAT
     Dosage: DOSAGE IS UNCERTAIN.
     Route: 065
  5. TAKECAB [Concomitant]
     Active Substance: VONOPRAZAN FUMURATE
     Dosage: DOSAGE IS UNCERTAIN.
     Route: 065
  6. CELLCEPT [Suspect]
     Active Substance: MYCOPHENOLATE MOFETIL\MYCOPHENOLATE MOFETIL HYDROCHLORIDE
     Indication: LUPUS NEPHRITIS
     Dosage: DOSAGE IS UNCERTAIN.
     Route: 048
  7. PREDNISOLONE. [Concomitant]
     Active Substance: PREDNISOLONE
     Dosage: DOSAGE IS UNCERTAIN.
     Route: 065
  8. EPADEL [Concomitant]
     Active Substance: ICOSAPENT
     Dosage: DOSAGE IS UNCERTAIN.
     Route: 065

REACTIONS (1)
  - Peptic ulcer [Unknown]
